FAERS Safety Report 22324194 (Version 3)
Quarter: 2023Q2

REPORT INFORMATION
  Report Type: Spontaneous
  Country: US (occurrence: US)
  Receive Date: 20230516
  Receipt Date: 20230605
  Transmission Date: 20230722
  Serious: Yes (Other)
  Sender: FDA-Public Use
  Company Number: ALC2023US002370

PATIENT
  Age: 54 Year
  Sex: Male

DRUGS (10)
  1. RHOPRESSA [Suspect]
     Active Substance: NETARSUDIL MESYLATE
     Indication: Visual impairment
     Dosage: 1 DRP, IN THE RIGHT EYE BID
     Route: 047
     Dates: start: 20230423
  2. RHOPRESSA [Suspect]
     Active Substance: NETARSUDIL MESYLATE
     Indication: Intraocular pressure increased
  3. SIMBRINZA [Concomitant]
     Active Substance: BRIMONIDINE TARTRATE\BRINZOLAMIDE
     Indication: Intraocular pressure increased
     Dosage: 1 DRP, EACH EYE TID
     Route: 047
  4. SIMBRINZA [Concomitant]
     Active Substance: BRIMONIDINE TARTRATE\BRINZOLAMIDE
     Indication: Visual impairment
  5. TIMOLOL [Concomitant]
     Active Substance: TIMOLOL
     Indication: Visual impairment
     Dosage: 1 DRP, IN THE RIGHT EYE BID
     Route: 047
  6. TIMOLOL [Concomitant]
     Active Substance: TIMOLOL
     Indication: Intraocular pressure increased
  7. XELPROS [Concomitant]
     Active Substance: LATANOPROST
     Indication: Visual impairment
     Dosage: 1 DRP, EACH EYE ON BEADTIME
     Route: 047
  8. XELPROS [Concomitant]
     Active Substance: LATANOPROST
     Indication: Intraocular pressure increased
  9. AVASTIN [Concomitant]
     Active Substance: BEVACIZUMAB
     Indication: Product used for unknown indication
     Route: 047
  10. TYLENOL [Concomitant]
     Active Substance: ACETAMINOPHEN
     Indication: Pain
     Dosage: 2 DF, TID FOR 3-4 DAYS
     Route: 048

REACTIONS (7)
  - Blindness unilateral [Recovering/Resolving]
  - Intraocular pressure increased [Recovering/Resolving]
  - Off label use [Unknown]
  - Prescribed overdose [Unknown]
  - Eye irritation [Recovered/Resolved]
  - Eye pruritus [Recovered/Resolved]
  - Headache [Recovered/Resolved]

NARRATIVE: CASE EVENT DATE: 20230423
